FAERS Safety Report 10217215 (Version 1)
Quarter: 2014Q2

REPORT INFORMATION
  Report Type: Spontaneous
  Country: JP (occurrence: JP)
  Receive Date: 20140604
  Receipt Date: 20140604
  Transmission Date: 20141212
  Serious: Yes (Other)
  Sender: FDA-Public Use
  Company Number: JP-WATSON-2014-12097

PATIENT
  Age: 10 Year
  Sex: Female

DRUGS (3)
  1. PREDNISOLONE (UNKNOWN) [Suspect]
     Indication: NEPHROTIC SYNDROME
     Dosage: 60 MG/M2, DAILY
     Route: 065
  2. PREDNISOLONE (UNKNOWN) [Suspect]
     Dosage: 40 MG/M2, UNKNOWN; ON ALTERNATE DAYS
     Route: 065
  3. BETAMETHASONE [Concomitant]
     Indication: DERMATITIS ATOPIC
     Dosage: UNKNOWN
     Route: 061

REACTIONS (1)
  - Proteinuria [Recovered/Resolved]
